FAERS Safety Report 6576819-8 (Version None)
Quarter: 2010Q1

REPORT INFORMATION
  Report Type: 
  Country: None (occurrence: None)
  Receive Date: 20100210
  Receipt Date: 20100204
  Transmission Date: 20100710
  Serious: Yes (Other)
  Sender: FDA-Public Use
  Company Number: US-B.I. PHARMACEUTICALS,INC./RIDGEFIELD-2010-BP-01372BP

PATIENT
  Age: 61 Year
  Sex: Male

DRUGS (2)
  1. FLOMAX [Suspect]
     Indication: PROSTATOMEGALY
     Dosage: 0.4 MG
     Route: 048
     Dates: start: 20100112, end: 20100201
  2. ALEVE (CAPLET) [Concomitant]
     Indication: MUSCULOSKELETAL PAIN

REACTIONS (2)
  - LIVER FUNCTION TEST ABNORMAL [None]
  - METASTATIC MALIGNANT MELANOMA [None]
